FAERS Safety Report 20812703 (Version 2)
Quarter: 2022Q2

REPORT INFORMATION
  Report Type: Report from Study
  Country: BE (occurrence: None)
  Receive Date: 20220511
  Receipt Date: 20220523
  Transmission Date: 20220721
  Serious: Yes (Other)
  Sender: FDA-Public Use
  Company Number: BE-ROCHE-3090193

PATIENT
  Age: 68 Year
  Sex: Female

DRUGS (3)
  1. ATEZOLIZUMAB [Suspect]
     Active Substance: ATEZOLIZUMAB
     Indication: Rectal cancer
     Dosage: THERAPY START DATE: 19/FEB/2020, 28/JAN/2020, 06/JAN/2020
     Route: 042
     Dates: start: 20191216
  2. FLUOROURACIL [Suspect]
     Active Substance: FLUOROURACIL
     Indication: Rectal cancer
     Dosage: THERAPY START DATE: 9/DEC/2019, 16/DEC/2019, 23/DEC/2019, 30/DEC/2019
     Route: 065
     Dates: start: 20191202
  3. PANTOPRAZOLE SODIUM [Concomitant]
     Active Substance: PANTOPRAZOLE SODIUM

REACTIONS (1)
  - Lymphadenopathy mediastinal [Recovered/Resolved]

NARRATIVE: CASE EVENT DATE: 20200220
